FAERS Safety Report 10772892 (Version 1)
Quarter: 2015Q1

REPORT INFORMATION
  Report Type: Other
  Country: US (occurrence: US)
  Receive Date: 20150207
  Receipt Date: 20150207
  Transmission Date: 20150721
  Serious: Yes (Hospitalization, Other)
  Sender: FDA-Public Use
  Company Number: US-ACORDA-ACO_106247_2014

PATIENT
  Sex: Female

DRUGS (1)
  1. AMPYRA [Suspect]
     Active Substance: DALFAMPRIDINE
     Indication: MULTIPLE SCLEROSIS
     Dosage: 10 MG, BID
     Route: 065

REACTIONS (6)
  - Depression suicidal [Unknown]
  - Anger [Unknown]
  - Suicidal ideation [Unknown]
  - Stress [Unknown]
  - Post-traumatic stress disorder [Unknown]
  - Blood pressure abnormal [Unknown]
